FAERS Safety Report 9928161 (Version 2)
Quarter: 2014Q3

REPORT INFORMATION
  Report Type: Spontaneous
  Country: BR (occurrence: BR)
  Receive Date: 20140227
  Receipt Date: 20140826
  Transmission Date: 20150326
  Serious: Yes (Other)
  Sender: FDA-Public Use
  Company Number: BR-JNJFOC-20140214982

PATIENT
  Age: 40 Year
  Sex: Male
  Weight: 55 kg

DRUGS (4)
  1. REMICADE [Suspect]
     Active Substance: INFLIXIMAB
     Indication: CROHN^S DISEASE
     Route: 042
     Dates: start: 20131124, end: 201401
  2. REMICADE [Suspect]
     Active Substance: INFLIXIMAB
     Indication: CROHN^S DISEASE
     Route: 042
     Dates: start: 2013
  3. AZATHIOPRINE. [Concomitant]
     Active Substance: AZATHIOPRINE
     Indication: CROHN^S DISEASE
     Route: 065
     Dates: end: 201401
  4. CORTICOSTEROID [Concomitant]
     Active Substance: CORTICOSTEROID NOS
     Indication: CROHN^S DISEASE
     Route: 065
     Dates: end: 201401

REACTIONS (2)
  - Weight decreased [Recovered/Resolved]
  - Colostomy [Recovered/Resolved]

NARRATIVE: CASE EVENT DATE: 201401
